FAERS Safety Report 8198048-7 (Version None)
Quarter: 2012Q1

REPORT INFORMATION
  Report Type: 
  Country: None (occurrence: None)
  Receive Date: 20120309
  Receipt Date: 20120229
  Transmission Date: 20120608
  Serious: Yes (Other)
  Sender: FDA-Public Use
  Company Number: US-JNJFOC-20111209229

PATIENT
  Sex: Male
  Weight: 82.1 kg

DRUGS (22)
  1. NOVOLOG [Concomitant]
  2. XARELTO [Suspect]
     Indication: THROMBOSIS PROPHYLAXIS
     Route: 048
     Dates: start: 20110928, end: 20110929
  3. LOVENOX [Suspect]
     Indication: THROMBOSIS PROPHYLAXIS
     Route: 058
     Dates: start: 20110926, end: 20110927
  4. NORVASC [Concomitant]
  5. FERROUS GLUCONATE [Concomitant]
  6. LISINOPRIL [Concomitant]
  7. VITAMIN [Concomitant]
  8. APAP TAB [Concomitant]
  9. ZOFRAN [Concomitant]
  10. SODIUM CHLORIDE [Concomitant]
  11. ASPIRIN [Suspect]
     Indication: ANTIPLATELET THERAPY
     Route: 048
     Dates: start: 20110926, end: 20111019
  12. PEPCID [Concomitant]
  13. FISH OIL [Concomitant]
  14. ZOCOR [Concomitant]
  15. PLAVIX [Suspect]
     Indication: ANTIPLATELET THERAPY
     Route: 048
     Dates: start: 20110926, end: 20111019
  16. FLAXSEED OIL [Concomitant]
  17. LANTUS [Concomitant]
  18. VITAMIN B COMPLEX CAP [Concomitant]
  19. COREG [Concomitant]
  20. FORTAZ [Concomitant]
  21. PROSCAR [Concomitant]
  22. MIRALAX [Concomitant]

REACTIONS (1)
  - DEEP VEIN THROMBOSIS [None]
